FAERS Safety Report 13857996 (Version 1)
Quarter: 2017Q3

REPORT INFORMATION
  Report Type: Spontaneous
  Country: US (occurrence: US)
  Receive Date: 20170810
  Receipt Date: 20170810
  Transmission Date: 20171127
  Serious: No
  Sender: FDA-Public Use
  Company Number: None

PATIENT
  Age: 56 Year
  Sex: Female

DRUGS (1)
  1. EPCLUSA [Suspect]
     Active Substance: SOFOSBUVIR\VELPATASVIR
     Dosage: 1 TABLET QD PO
     Route: 048

REACTIONS (3)
  - Nervousness [None]
  - Stress [None]
  - Pruritus [None]

NARRATIVE: CASE EVENT DATE: 20170809
